FAERS Safety Report 5066535-6 (Version None)
Quarter: 2006Q3

REPORT INFORMATION
  Report Type: 
  Country: None (occurrence: None)
  Receive Date: 20060726
  Receipt Date: 20060713
  Transmission Date: 20061208
  Serious: Yes (Hospitalization, Other)
  Sender: FDA-Public Use
  Company Number: 2006087155

PATIENT
  Age: 54 Year
  Sex: Female
  Weight: 118.8424 kg

DRUGS (10)
  1. DETROL LA [Suspect]
     Indication: URINARY INCONTINENCE
     Dosage: 4 MG (4 MG, 1 IN 1 D), UNKNOWN
  2. WARFARIN SODIUM [Concomitant]
  3. PROTONIX [Concomitant]
  4. CARISOPRODOL [Concomitant]
  5. VALSARTAN [Concomitant]
  6. ABIEN (ZOLPIDEM TARTRATE) [Concomitant]
  7. TRAZODONE HCL [Concomitant]
  8. HYDROCODONE (HYDROCODONE) [Concomitant]
  9. SPIRIVA [Concomitant]
  10. XANAX (ALLPRAZOLAM) [Concomitant]

REACTIONS (6)
  - ABDOMINAL DISTENSION [None]
  - BLOOD CHOLESTEROL INCREASED [None]
  - BRONCHITIS [None]
  - FLATULENCE [None]
  - GASTRIC HAEMORRHAGE [None]
  - WEIGHT DECREASED [None]
